FAERS Safety Report 13035186 (Version 1)
Quarter: 2016Q4

REPORT INFORMATION
  Report Type: Spontaneous
  Country: US (occurrence: US)
  Receive Date: 20161216
  Receipt Date: 20161216
  Transmission Date: 20170207
  Serious: No
  Sender: FDA-Public Use
  Company Number: None

PATIENT
  Age: 48 Year
  Sex: Female
  Weight: 58.4 kg

DRUGS (5)
  1. ZOFRAN [Concomitant]
     Active Substance: ONDANSETRON HYDROCHLORIDE
  2. LEUCOVORIN CALCIUM. [Suspect]
     Active Substance: LEUCOVORIN CALCIUM
     Dates: end: 20161208
  3. ELOXATIN [Suspect]
     Active Substance: OXALIPLATIN
     Dates: end: 20161208
  4. 5-FLUOROURACIL (5/FU) [Suspect]
     Active Substance: FLUOROURACIL
     Dates: end: 20161208
  5. EMEND [Concomitant]
     Active Substance: APREPITANT

REACTIONS (3)
  - Asthenia [None]
  - Syncope [None]
  - Nausea [None]

NARRATIVE: CASE EVENT DATE: 20161208
